FAERS Safety Report 5854813-X (Version None)
Quarter: 2008Q3

REPORT INFORMATION
  Report Type: 
  Country: None (occurrence: None)
  Receive Date: 20080822
  Receipt Date: 20080225
  Transmission Date: 20090109
  Serious: No
  Sender: FDA-Public Use
  Company Number: US-ABBOTT-08P-163-0434739-00

PATIENT
  Sex: Female
  Weight: 70.37 kg

DRUGS (3)
  1. SYNTHROID [Suspect]
     Indication: HYPOTHYROIDISM
     Route: 048
     Dates: start: 20070901, end: 20080101
  2. SYNTHROID [Suspect]
     Dosage: 50MCG
     Route: 048
     Dates: start: 20080101, end: 20080201
  3. SYNTHROID [Suspect]
     Route: 048
     Dates: start: 20080201

REACTIONS (7)
  - DIZZINESS [None]
  - DRY MOUTH [None]
  - EAR PAIN [None]
  - FEELING ABNORMAL [None]
  - HEADACHE [None]
  - SOMNOLENCE [None]
  - TINNITUS [None]
